FAERS Safety Report 11848360 (Version 1)
Quarter: 2015Q4

REPORT INFORMATION
  Report Type: Spontaneous
  Country: US (occurrence: US)
  Receive Date: 20151217
  Receipt Date: 20151217
  Transmission Date: 20160305
  Serious: No
  Sender: FDA-Public Use
  Company Number: US-HOSPIRA-2834716

PATIENT
  Age: 54 Year
  Sex: Female

DRUGS (1)
  1. DIPHENHYDRAMINE. [Suspect]
     Active Substance: DIPHENHYDRAMINE
     Indication: MIGRAINE
     Dosage: TWICE DAILY AS NEEDED
     Route: 030
     Dates: start: 20150409

REACTIONS (4)
  - Circumstance or information capable of leading to medication error [Recovered/Resolved]
  - Product use issue [Recovered/Resolved]
  - Product label issue [Recovered/Resolved]
  - Accidental exposure to product [Recovered/Resolved]

NARRATIVE: CASE EVENT DATE: 20150402
